FAERS Safety Report 21020384 (Version 1)
Quarter: 2022Q2

REPORT INFORMATION
  Report Type: Report from Study
  Country: US (occurrence: US)
  Receive Date: 20220629
  Receipt Date: 20220629
  Transmission Date: 20220720
  Serious: Yes (Other)
  Sender: FDA-Public Use
  Company Number: US-GILEAD-2022-0586699

PATIENT
  Age: 20 Year
  Sex: Male

DRUGS (16)
  1. AZTREONAM LYSINE [Suspect]
     Active Substance: AZTREONAM LYSINE
     Indication: Cystic fibrosis
     Dosage: 75 MG, TID FOR 28 DAYS ON THEN 28 DAYS OFF
     Route: 055
  2. TRIKAFTA [Concomitant]
     Active Substance: ELEXACAFTOR\IVACAFTOR\TEZACAFTOR
     Dates: start: 202110
  3. FLONASE [Concomitant]
     Active Substance: FLUTICASONE PROPIONATE
  4. EPIDIOLEX [Concomitant]
     Active Substance: CANNABIDIOL
  5. HUMALOG [Concomitant]
     Active Substance: INSULIN LISPRO
  6. CREON [Concomitant]
     Active Substance: PANCRELIPASE AMYLASE\PANCRELIPASE LIPASE\PANCRELIPASE PROTEASE
  7. GAS-X [Concomitant]
     Active Substance: DIMETHICONE
  8. METOCLOPRAMIDE [Concomitant]
     Active Substance: METOCLOPRAMIDE
  9. PHENOBARBITAL [Concomitant]
     Active Substance: PHENOBARBITAL
  10. ALBUTEROL SULFATE [Concomitant]
     Active Substance: ALBUTEROL SULFATE
  11. MIRALAX [Concomitant]
     Active Substance: POLYETHYLENE GLYCOL 3350
  12. VITAMIN D NOS [Concomitant]
     Active Substance: VITAMIN D NOS
  13. PULMOZYME [Concomitant]
     Active Substance: DORNASE ALFA
  14. MINERALS\VITAMINS [Concomitant]
     Active Substance: MINERALS\VITAMINS
  15. ONFI [Concomitant]
     Active Substance: CLOBAZAM
  16. NUTRINEAL [AMINO ACIDS NOS] [Concomitant]

REACTIONS (1)
  - Pneumonia [Unknown]

NARRATIVE: CASE EVENT DATE: 20220428
